FAERS Safety Report 16012121 (Version 1)
Quarter: 2019Q1

REPORT INFORMATION
  Report Type: Spontaneous
  Country: US (occurrence: US)
  Receive Date: 20190227
  Receipt Date: 20190227
  Transmission Date: 20190418
  Serious: No
  Sender: FDA-Public Use
  Company Number: US-TEVA-2019-US-1007548

PATIENT
  Age: 58 Year
  Sex: Male

DRUGS (2)
  1. MINOCYCLINE [Suspect]
     Active Substance: MINOCYCLINE\MINOCYCLINE HYDROCHLORIDE
     Dosage: 100 MILLIGRAM DAILY; WITH A CUMULATIVE DOSE OF 693G
     Route: 065
  2. MINOCYCLINE [Suspect]
     Active Substance: MINOCYCLINE\MINOCYCLINE HYDROCHLORIDE
     Indication: CROHN^S DISEASE
     Dosage: 200 MILLIGRAM DAILY;
     Route: 065

REACTIONS (2)
  - Scleral pigmentation [Unknown]
  - Skin hyperpigmentation [Unknown]
